FAERS Safety Report 20665374 (Version 4)
Quarter: 2022Q3

REPORT INFORMATION
  Report Type: Report from Study
  Country: CA (occurrence: CA)
  Receive Date: 20220402
  Receipt Date: 20220716
  Transmission Date: 20221027
  Serious: Yes (Death, Hospitalization, Other)
  Sender: FDA-Public Use
  Company Number: CA-ABBVIE-22K-028-4340429-00

PATIENT
  Sex: Male

DRUGS (2)
  1. RINVOQ [Suspect]
     Active Substance: UPADACITINIB
     Indication: Rheumatoid arthritis
     Route: 048
     Dates: start: 20210809, end: 202204
  2. RINVOQ [Suspect]
     Active Substance: UPADACITINIB
     Route: 048
     Dates: start: 20220428

REACTIONS (13)
  - COVID-19 [Recovering/Resolving]
  - Back pain [Unknown]
  - Intervertebral disc protrusion [Unknown]
  - Multiple organ dysfunction syndrome [Fatal]
  - Subarachnoid haemorrhage [Unknown]
  - Pulmonary embolism [Unknown]
  - Pneumonia [Recovering/Resolving]
  - Malaise [Recovering/Resolving]
  - Musculoskeletal disorder [Recovering/Resolving]
  - Platelet count decreased [Unknown]
  - Fall [Unknown]
  - Walking aid user [Unknown]
  - Cardiac failure chronic [Unknown]

NARRATIVE: CASE EVENT DATE: 20220101
